FAERS Safety Report 9217059 (Version 3)
Quarter: 2013Q3

REPORT INFORMATION
  Report Type: Spontaneous
  Country: US (occurrence: US)
  Receive Date: 20130408
  Receipt Date: 20130711
  Transmission Date: 20140515
  Serious: No
  Sender: FDA-Public Use
  Company Number: US-ASTRAZENECA-2006UW21491

PATIENT
  Age: 78 Year
  Sex: Female
  Weight: 54.4 kg

DRUGS (7)
  1. CRESTOR [Suspect]
     Indication: BLOOD CHOLESTEROL INCREASED
     Route: 048
     Dates: start: 200610
  2. NEXIUM [Suspect]
     Indication: GASTROOESOPHAGEAL REFLUX DISEASE
     Route: 048
     Dates: start: 20101014
  3. NEXIUM [Suspect]
     Indication: GASTROOESOPHAGEAL REFLUX DISEASE
     Route: 048
     Dates: start: 20101014
  4. NEXIUM [Suspect]
     Indication: GASTROOESOPHAGEAL REFLUX DISEASE
     Route: 048
     Dates: start: 201209, end: 20130605
  5. NEXIUM [Suspect]
     Indication: GASTROOESOPHAGEAL REFLUX DISEASE
     Route: 048
     Dates: start: 201209, end: 20130605
  6. ZETIA [Concomitant]
     Indication: BLOOD CHOLESTEROL ABNORMAL
     Dates: start: 2010
  7. DETROL LA [Concomitant]

REACTIONS (11)
  - Chest pain [Not Recovered/Not Resolved]
  - Breakthrough pain [Unknown]
  - Gastrooesophageal reflux disease [Unknown]
  - Gastrooesophageal reflux disease [Not Recovered/Not Resolved]
  - Pain in jaw [Not Recovered/Not Resolved]
  - Muscle spasms [Not Recovered/Not Resolved]
  - Muscle spasms [Not Recovered/Not Resolved]
  - Intentional drug misuse [Unknown]
  - Drug ineffective [Not Recovered/Not Resolved]
  - Drug effect decreased [Unknown]
  - Intentional drug misuse [Unknown]
